FAERS Safety Report 10530101 (Version 1)
Quarter: 2014Q4

REPORT INFORMATION
  Report Type: Spontaneous
  Country: US (occurrence: None)
  Receive Date: 20141020
  Receipt Date: 20141020
  Transmission Date: 20150528
  Serious: No
  Sender: FDA-Public Use
  Company Number: None

PATIENT
  Age: 2 Year
  Sex: Female
  Weight: 14.06 kg

DRUGS (1)
  1. SINGULAIR [Suspect]
     Active Substance: MONTELUKAST SODIUM
     Indication: ASTHMA
     Route: 048
     Dates: start: 20141010, end: 20141019

REACTIONS (8)
  - Mood altered [None]
  - Self injurious behaviour [None]
  - Sleep disorder [None]
  - Aggression [None]
  - Increased tendency to bruise [None]
  - Abnormal behaviour [None]
  - Screaming [None]
  - Physical assault [None]

NARRATIVE: CASE EVENT DATE: 20141010
